FAERS Safety Report 10372116 (Version 3)
Quarter: 2015Q2

REPORT INFORMATION
  Report Type: Report from Study
  Country: PR (occurrence: PR)
  Receive Date: 20140808
  Receipt Date: 20150512
  Transmission Date: 20150821
  Serious: Yes (Death)
  Sender: FDA-Public Use
  Company Number: PR-ABBVIE-14K-131-1226348-00

PATIENT
  Age: 62 Year
  Sex: Male

DRUGS (1)
  1. HUMIRA [Suspect]
     Active Substance: ADALIMUMAB
     Indication: RHEUMATOID ARTHRITIS
     Route: 058
     Dates: start: 20111028

REACTIONS (2)
  - Drug ineffective [Unknown]
  - Death [Fatal]

NARRATIVE: CASE EVENT DATE: 20140721
